FAERS Safety Report 18022897 (Version 1)
Quarter: 2020Q3

REPORT INFORMATION
  Report Type: Spontaneous
  Country: US (occurrence: US)
  Receive Date: 20200715
  Receipt Date: 20200715
  Transmission Date: 20201103
  Serious: No
  Sender: FDA-Public Use
  Company Number: US-ALLERGAN-2013772US

PATIENT
  Sex: Female

DRUGS (1)
  1. UBRELVY [Suspect]
     Active Substance: UBROGEPANT
     Indication: MIGRAINE
     Dosage: UNK
     Route: 048
     Dates: start: 202003

REACTIONS (2)
  - Oropharyngeal pain [Recovered/Resolved]
  - Nasal oedema [Unknown]

NARRATIVE: CASE EVENT DATE: 202003
